FAERS Safety Report 17099833 (Version 2)
Quarter: 2019Q4

REPORT INFORMATION
  Report Type: Spontaneous
  Country: CH (occurrence: CH)
  Receive Date: 20191202
  Receipt Date: 20191209
  Transmission Date: 20200122
  Serious: Yes (Hospitalization)
  Sender: FDA-Public Use
  Company Number: CH-MYLANLABS-2019M1118394

PATIENT
  Age: 58 Year
  Sex: Female
  Weight: 68 kg

DRUGS (4)
  1. ELTROXIN [Concomitant]
     Active Substance: LEVOTHYROXINE
     Dosage: UNK
  2. ATACAND [Concomitant]
     Active Substance: CANDESARTAN CILEXETIL
     Dosage: UNK
  3. FEMOSTON MONO [Suspect]
     Active Substance: ESTRADIOL HEMIHYDRATE
     Indication: PRODUCT USED FOR UNKNOWN INDICATION
     Dosage: 2 MILLIGRAM, QD
     Dates: start: 201504
  4. FEMOSTON MONO [Suspect]
     Active Substance: ESTRADIOL HEMIHYDRATE
     Dosage: UNINTENTIONALLY TAKEN A DOUBLE DOSAGE OF FEMOSTON IN 2 WEEKS PRIOR TO INPATIENT
     Dates: start: 20191024, end: 20191108

REACTIONS (3)
  - Anxiety [Unknown]
  - Acute myocardial infarction [Recovered/Resolved]
  - Accidental overdose [Recovered/Resolved]

NARRATIVE: CASE EVENT DATE: 20191024
